FAERS Safety Report 23098147 (Version 2)
Quarter: 2023Q4

REPORT INFORMATION
  Report Type: Spontaneous
  Country: DE (occurrence: DE)
  Receive Date: 20231023
  Receipt Date: 20231123
  Transmission Date: 20240109
  Serious: Yes (Other)
  Sender: FDA-Public Use
  Company Number: DE-BRISTOL-MYERS SQUIBB COMPANY-2023-146539

PATIENT
  Age: 85 Year

DRUGS (4)
  1. PREDNISOLONE [Suspect]
     Active Substance: PREDNISOLONE
     Indication: Product used for unknown indication
     Route: 065
  2. EVEROLIMUS [Concomitant]
     Active Substance: EVEROLIMUS
     Indication: Product used for unknown indication
     Route: 065
  3. NIVOLUMAB [Suspect]
     Active Substance: NIVOLUMAB
     Indication: Renal cell carcinoma
     Dosage: NIVO CONTINUED
     Route: 065
     Dates: start: 201802
  4. NIVOLUMAB [Suspect]
     Active Substance: NIVOLUMAB
     Indication: Renal cell carcinoma
     Dosage: 3MG/KG/ BW 270 MG NIVOLUMAB 2 W
     Route: 065
     Dates: start: 201709

REACTIONS (10)
  - Pneumonitis [Unknown]
  - Taste disorder [Unknown]
  - Lip ulceration [Unknown]
  - Prescribed overdose [Unknown]
  - Lip pain [Unknown]
  - Chapped lips [Not Recovered/Not Resolved]
  - Lip haemorrhage [Unknown]
  - Mucosal inflammation [Unknown]
  - Erythema [Unknown]
  - Lip dry [Unknown]

NARRATIVE: CASE EVENT DATE: 20180101
